FAERS Safety Report 8975783 (Version 1)
Quarter: 2012Q4

REPORT INFORMATION
  Report Type: 
  Country: US (occurrence: US)
  Receive Date: 20121219
  Receipt Date: 20121219
  Transmission Date: 20130627
  Serious: No
  Sender: FDA-Public Use
  Company Number: US-AMGEN-USASP2012061326

PATIENT
  Age: 55 Year
  Sex: Female
  Weight: 66.67 kg

DRUGS (7)
  1. PROLIA [Suspect]
     Indication: OSTEOPOROSIS POSTMENOPAUSAL
     Dosage: UNK UNK, q6mo
     Dates: start: 200909
  2. FOLIC ACID [Concomitant]
     Dosage: 2 UNK, UNK
  3. OSCAL [Concomitant]
     Dosage: UNK
  4. VITAMIN D [Concomitant]
     Dosage: UNK
  5. MULTIVITAMIN [Concomitant]
     Dosage: UNK
  6. CETIRIZINE [Concomitant]
     Dosage: UNK
  7. METHOTREXATE [Concomitant]
     Indication: RHEUMATOID ARTHRITIS
     Dosage: UNK UNK, qwk

REACTIONS (3)
  - Pruritus [Recovered/Resolved]
  - Back pain [Recovered/Resolved]
  - Rash [Not Recovered/Not Resolved]
